FAERS Safety Report 11976252 (Version 1)
Quarter: 2016Q1

REPORT INFORMATION
  Report Type: Spontaneous
  Country: None (occurrence: None)
  Receive Date: 20160128
  Receipt Date: 20160128
  Transmission Date: 20160526
  Serious: No
  Sender: FDA-Public Use
  Company Number: None

PATIENT
  Age: 9 Year
  Sex: Male
  Weight: 36.29 kg

DRUGS (1)
  1. TAMIFLU [Suspect]
     Active Substance: OSELTAMIVIR PHOSPHATE
     Indication: INFLUENZA
     Dosage: SINGLE DOSE
     Route: 048

REACTIONS (7)
  - Confusional state [None]
  - Abnormal behaviour [None]
  - Abdominal pain upper [None]
  - Anger [None]
  - Fear [None]
  - Insomnia [None]
  - Vomiting [None]

NARRATIVE: CASE EVENT DATE: 20150126
